FAERS Safety Report 21992230 (Version 1)
Quarter: 2023Q1

REPORT INFORMATION
  Report Type: Report from Study
  Country: DE (occurrence: DE)
  Receive Date: 20230214
  Receipt Date: 20230214
  Transmission Date: 20230417
  Serious: Yes (Death)
  Sender: FDA-Public Use
  Company Number: None

PATIENT
  Age: 12 Year

DRUGS (2)
  1. ARIPIPRAZOLE [Interacting]
     Active Substance: ARIPIPRAZOLE
     Indication: Intellectual disability
  2. GUANFACINE HYDROCHLORIDE [Interacting]
     Active Substance: GUANFACINE HYDROCHLORIDE
     Indication: Emotional disorder

REACTIONS (2)
  - Electrocardiogram QT prolonged [Fatal]
  - Drug interaction [Fatal]
